FAERS Safety Report 22240049 (Version 2)
Quarter: 2023Q2

REPORT INFORMATION
  Report Type: Spontaneous
  Country: US (occurrence: US)
  Receive Date: 20230421
  Receipt Date: 20230524
  Transmission Date: 20230721
  Serious: No
  Sender: FDA-Public Use
  Company Number: US-PFIZER INC-PV202300072642

PATIENT
  Age: 32 Year
  Sex: Female

DRUGS (1)
  1. NURTEC ODT [Suspect]
     Active Substance: RIMEGEPANT SULFATE
     Dosage: 75 MG, AS NEEDED (TAKE ONE TABLET BY MOUTH DAILY AS NEEDED. NO MORE THAN ONE DOSE IN 24 HOURS)
     Route: 048

REACTIONS (1)
  - Headache [Unknown]
